FAERS Safety Report 5974808-5 (Version None)
Quarter: 2008Q4

REPORT INFORMATION
  Report Type: 
  Country: None (occurrence: None)
  Receive Date: 20081201
  Receipt Date: 20081124
  Transmission Date: 20090506
  Serious: Yes (Other)
  Sender: FDA-Public Use
  Company Number: BR-PFIZER INC-2008100437

PATIENT

DRUGS (2)
  1. VIAGRA [Suspect]
     Route: 048
  2. SPORANOX [Interacting]
     Route: 065

REACTIONS (2)
  - CONJUNCTIVAL HAEMORRHAGE [None]
  - DRUG INTERACTION [None]
